FAERS Safety Report 4353746-8 (Version None)
Quarter: 2004Q2

REPORT INFORMATION
  Report Type: 
  Country: None (occurrence: None)
  Receive Date: 20040505
  Receipt Date: 20040429
  Transmission Date: 20050107
  Serious: Yes (Hospitalization)
  Sender: FDA-Public Use
  Company Number: AU-MERCK-0404AUS00074

PATIENT
  Age: 39 Year
  Sex: Male

DRUGS (1)
  1. VIOXX [Suspect]
     Indication: TRIGGER FINGER
     Route: 048
     Dates: start: 20040227, end: 20040329

REACTIONS (1)
  - EOSINOPHILIC CYSTITIS [None]
